FAERS Safety Report 4602858-X (Version None)
Quarter: 2005Q1

REPORT INFORMATION
  Report Type: 
  Country: None (occurrence: None)
  Receive Date: 20050309
  Receipt Date: 20050216
  Transmission Date: 20050727
  Serious: Yes (Other)
  Sender: FDA-Public Use
  Company Number: US-GLAXOSMITHKLINE-A0545928A

PATIENT
  Age: 42 Year
  Sex: Male
  Weight: 105.9 kg

DRUGS (2)
  1. WELLBUTRIN SR [Suspect]
     Indication: ILL-DEFINED DISORDER
     Dosage: 150MG TWICE PER DAY
     Route: 048
     Dates: start: 20050110
  2. ZOCOR [Concomitant]
     Dosage: 20MG PER DAY
     Route: 048
     Dates: start: 20041201

REACTIONS (3)
  - EYE SWELLING [None]
  - PHARYNGOLARYNGEAL PAIN [None]
  - RASH [None]
